FAERS Safety Report 8343542-9 (Version None)
Quarter: 2012Q2

REPORT INFORMATION
  Report Type: 
  Country: None (occurrence: None)
  Receive Date: 20120508
  Receipt Date: 20120503
  Transmission Date: 20120825
  Serious: Yes (Other)
  Sender: FDA-Public Use
  Company Number: US-PFIZER INC-2012101762

PATIENT
  Sex: Male
  Weight: 104 kg

DRUGS (8)
  1. LYRICA [Suspect]
     Indication: SPINAL CORD INJURY
  2. ACETYLSALICYLIC ACID [Concomitant]
     Indication: CARDIAC DISORDER
     Dosage: UNK, DAILY
  3. LYRICA [Suspect]
     Indication: NERVE INJURY
     Dosage: 300 MG, 2X/DAY
     Route: 048
  4. METHOTREXATE [Concomitant]
     Indication: PSORIATIC ARTHROPATHY
     Dosage: UNK
  5. HYDROCODONE [Concomitant]
     Indication: PAIN
     Dosage: UNK
  6. FOLIC ACID [Concomitant]
     Dosage: UNK
  7. LYRICA [Suspect]
     Indication: PAIN
  8. PAXIL [Concomitant]
     Indication: DEPRESSION
     Dosage: 20 MG, DAILY

REACTIONS (10)
  - MYOCARDIAL INFARCTION [None]
  - CATARACT [None]
  - FEELING ABNORMAL [None]
  - HEARING IMPAIRED [None]
  - CARDIAC ARREST [None]
  - TINNITUS [None]
  - ACTIVITIES OF DAILY LIVING IMPAIRED [None]
  - WITHDRAWAL SYNDROME [None]
  - PAIN [None]
  - VISUAL IMPAIRMENT [None]
